FAERS Safety Report 7971937-1 (Version None)
Quarter: 2011Q4

REPORT INFORMATION
  Report Type: 
  Country: None (occurrence: None)
  Receive Date: 20111212
  Receipt Date: 20111202
  Transmission Date: 20120403
  Serious: Yes (Hospitalization, Disabling)
  Sender: FDA-Public Use
  Company Number: US-US-EMD SERONO, INC.-7099770

PATIENT
  Sex: Male

DRUGS (1)
  1. REBIF [Suspect]
     Indication: PRODUCT USED FOR UNKNOWN INDICATION
     Route: 058
     Dates: start: 20040621

REACTIONS (5)
  - RIB FRACTURE [None]
  - FALL [None]
  - CENTRAL NERVOUS SYSTEM LESION [None]
  - PNEUMONIA [None]
  - NERVE INJURY [None]
